FAERS Safety Report 21645900 (Version 4)
Quarter: 2022Q4

REPORT INFORMATION
  Report Type: Spontaneous
  Country: CN (occurrence: CN)
  Receive Date: 20221126
  Receipt Date: 20221228
  Transmission Date: 20230113
  Serious: Yes (Other)
  Sender: FDA-Public Use
  Company Number: CN-JNJFOC-20221141050

PATIENT
  Age: 35 Year
  Sex: Female

DRUGS (4)
  1. SPORANOX [Suspect]
     Active Substance: ITRACONAZOLE
     Indication: Skin disorder
     Route: 048
  2. SPORANOX [Suspect]
     Active Substance: ITRACONAZOLE
     Dosage: 2 CAPSULE PER TIME
     Route: 048
  3. SPORANOX [Suspect]
     Active Substance: ITRACONAZOLE
     Route: 048
     Dates: start: 202208, end: 202209
  4. SPORANOX [Suspect]
     Active Substance: ITRACONAZOLE
     Route: 048
     Dates: start: 20221110

REACTIONS (4)
  - Skin necrosis [Recovering/Resolving]
  - COVID-19 [Not Recovered/Not Resolved]
  - Drug ineffective [Unknown]
  - Decreased appetite [Recovered/Resolved]
